FAERS Safety Report 13468894 (Version 2)
Quarter: 2017Q3

REPORT INFORMATION
  Report Type: Spontaneous
  Country: US (occurrence: US)
  Receive Date: 20170421
  Receipt Date: 20170726
  Transmission Date: 20171127
  Serious: Yes (Death)
  Sender: FDA-Public Use
  Company Number: US-PFIZER INC-2017172417

PATIENT
  Age: 44 Year
  Sex: Female
  Weight: 88 kg

DRUGS (1)
  1. LYRICA [Suspect]
     Active Substance: PREGABALIN
     Indication: FIBROMYALGIA
     Dosage: 150 MG, 3X/DAY

REACTIONS (6)
  - Accidental overdose [Fatal]
  - Wheezing [Fatal]
  - Dyspnoea [Fatal]
  - Cough [Fatal]
  - Confusional state [Fatal]
  - Renal failure [Fatal]

NARRATIVE: CASE EVENT DATE: 20151027
